FAERS Safety Report 14073343 (Version 1)
Quarter: 2017Q4

REPORT INFORMATION
  Report Type: Spontaneous
  Country: TH (occurrence: TH)
  Receive Date: 20171011
  Receipt Date: 20171011
  Transmission Date: 20180321
  Serious: Yes (Death, Life-Threatening, Hospitalization)
  Sender: FDA-Public Use
  Company Number: TH-ACTELION-A-CH2017-160761

PATIENT
  Age: 64 Year
  Sex: Male

DRUGS (1)
  1. TRACLEER [Suspect]
     Active Substance: BOSENTAN
     Indication: PULMONARY ARTERIAL HYPERTENSION
     Dosage: 125 MG, BID
     Route: 048
     Dates: start: 20130411

REACTIONS (4)
  - Pulmonary embolism [Fatal]
  - Cardiac failure [Fatal]
  - Pulmonary arterial hypertension [Fatal]
  - Disease progression [Fatal]
